FAERS Safety Report 21407696 (Version 1)
Quarter: 2022Q4

REPORT INFORMATION
  Report Type: Spontaneous
  Country: CN (occurrence: CN)
  Receive Date: 20221004
  Receipt Date: 20221004
  Transmission Date: 20230113
  Serious: Yes (Other)
  Sender: FDA-Public Use
  Company Number: CN-PFIZER INC-PV202200069495

PATIENT
  Age: 84 Year
  Sex: Female

DRUGS (13)
  1. LINEZOLID [Suspect]
     Active Substance: LINEZOLID
     Indication: Pneumonia
     Dosage: 0.6 G, 2X/DAY
     Route: 041
     Dates: start: 20181220, end: 20181223
  2. MEROPENEM [Concomitant]
     Active Substance: MEROPENEM
     Indication: Pneumonia
     Dosage: 0.5 G, Q6H
     Route: 041
     Dates: start: 20181220, end: 20181228
  3. AMBROXOL [Concomitant]
     Active Substance: AMBROXOL
     Indication: Productive cough
     Dosage: 30 MG, 3X/DAY
     Route: 041
     Dates: start: 20181201, end: 20181229
  4. SIMVASTATIN [Concomitant]
     Active Substance: SIMVASTATIN
     Indication: Lipids abnormal
     Dosage: 20 MG, QN
     Route: 048
     Dates: start: 20181201, end: 20181229
  5. SIMVASTATIN [Concomitant]
     Active Substance: SIMVASTATIN
     Indication: Plaque shift
  6. BENAZEPRIL [Concomitant]
     Active Substance: BENAZEPRIL HYDROCHLORIDE
     Indication: Hypertension
     Dosage: 10 MG, DAILY
     Route: 048
     Dates: start: 20181201, end: 20181221
  7. BENAZEPRIL [Concomitant]
     Active Substance: BENAZEPRIL HYDROCHLORIDE
     Dosage: 10 MG, DAILY
     Route: 048
     Dates: start: 20181224, end: 20181229
  8. AMLODIPINE BESYLATE [Concomitant]
     Active Substance: AMLODIPINE BESYLATE
     Indication: Hypertension
     Dosage: 5 MG, DAILY
     Route: 048
     Dates: start: 20181201, end: 20181229
  9. MONTELUKAST SODIUM [Concomitant]
     Active Substance: MONTELUKAST SODIUM
     Indication: Bronchial hyperreactivity
     Dosage: 10 MG, QN
     Route: 048
     Dates: start: 20181201, end: 20181212
  10. ASPIRIN [Concomitant]
     Active Substance: ASPIRIN
     Dosage: 100 MG, DAILY
     Route: 048
     Dates: start: 20181201, end: 20181229
  11. FELODIPINE [Concomitant]
     Active Substance: FELODIPINE
     Dosage: UNK
  12. OXIRACETAM [Concomitant]
     Active Substance: OXIRACETAM
     Dosage: 0.8 G, 2X/DAY
     Route: 048
     Dates: start: 20181202, end: 20181229
  13. LANSOPRAZOLE [Concomitant]
     Active Substance: LANSOPRAZOLE
     Dosage: 30 MG, DAILY
     Route: 041
     Dates: start: 20181220, end: 20181229

REACTIONS (1)
  - Drug-induced liver injury [Recovered/Resolved]

NARRATIVE: CASE EVENT DATE: 20181222
